FAERS Safety Report 19401108 (Version 1)
Quarter: 2021Q2

REPORT INFORMATION
  Report Type: Spontaneous
  Country: US (occurrence: US)
  Receive Date: 20210610
  Receipt Date: 20210610
  Transmission Date: 20210717
  Serious: Yes (Hospitalization, Disabling, Other)
  Sender: FDA-Public Use
  Company Number: US-ORGANON-1109USA01183

PATIENT
  Sex: Female

DRUGS (2)
  1. ALENDRONATE SODIUM. [Suspect]
     Active Substance: ALENDRONATE SODIUM
     Indication: OSTEOPOROSIS
     Dosage: 70 MG, QW
     Route: 048
     Dates: start: 20100527
  2. FOSAMAX [Suspect]
     Active Substance: ALENDRONATE SODIUM
     Indication: OSTEOPOROSIS
     Dosage: 70 MG, QW
     Route: 048
     Dates: start: 200104

REACTIONS (50)
  - Low turnover osteopathy [Not Recovered/Not Resolved]
  - Fatigue [Unknown]
  - Spondylolisthesis [Unknown]
  - Temporomandibular joint syndrome [Unknown]
  - Muscle strain [Unknown]
  - Anxiety [Unknown]
  - Decreased appetite [Unknown]
  - Spinal osteoarthritis [Unknown]
  - Abdominal pain upper [Recovered/Resolved]
  - Urinary retention [Unknown]
  - Femur fracture [Not Recovered/Not Resolved]
  - Gallbladder disorder [Unknown]
  - Paranasal sinus discomfort [Unknown]
  - Chronic gastritis [Unknown]
  - Temperature intolerance [Unknown]
  - Nausea [Unknown]
  - Myalgia [Unknown]
  - Intervertebral disc protrusion [Unknown]
  - Stress fracture [Not Recovered/Not Resolved]
  - Femur fracture [Not Recovered/Not Resolved]
  - Osteoarthritis [Unknown]
  - Irritable bowel syndrome [Unknown]
  - Acrochordon [Unknown]
  - Facet joint syndrome [Unknown]
  - Osteoporosis [Not Recovered/Not Resolved]
  - Cyst [Unknown]
  - Fatigue [Unknown]
  - Asthenia [Not Recovered/Not Resolved]
  - Hypertension [Unknown]
  - Back pain [Unknown]
  - Gastroenteritis viral [Unknown]
  - Gastrointestinal disorder [Unknown]
  - Gastrooesophageal reflux disease [Unknown]
  - Anaemia postoperative [Unknown]
  - Foot fracture [Unknown]
  - Fall [Unknown]
  - Colitis [Unknown]
  - Arthralgia [Unknown]
  - Radiculopathy [Unknown]
  - Fracture nonunion [Recovered/Resolved]
  - Impaired healing [Unknown]
  - Stress fracture [Unknown]
  - Femur fracture [Recovered/Resolved]
  - Radius fracture [Unknown]
  - Depression [Unknown]
  - Hyperlipidaemia [Unknown]
  - Heart rate irregular [Unknown]
  - Contusion [Unknown]
  - Intervertebral disc degeneration [Unknown]
  - Abdominal pain [Recovered/Resolved]

NARRATIVE: CASE EVENT DATE: 20011118
